FAERS Safety Report 13965575 (Version 1)
Quarter: 2017Q3

REPORT INFORMATION
  Report Type: Spontaneous
  Country: JP (occurrence: JP)
  Receive Date: 20170913
  Receipt Date: 20170913
  Transmission Date: 20171128
  Serious: Yes (Other)
  Sender: FDA-Public Use
  Company Number: JP-PFIZER INC-2017391169

PATIENT

DRUGS (2)
  1. SELARA [Suspect]
     Active Substance: EPLERENONE
     Indication: BLOOD ALDOSTERONE INCREASED
  2. SELARA [Suspect]
     Active Substance: EPLERENONE
     Indication: BLOOD POTASSIUM DECREASED
     Dosage: UNK
     Route: 048

REACTIONS (3)
  - Product use in unapproved indication [Unknown]
  - Protein urine present [Unknown]
  - Diabetes mellitus [Unknown]
